FAERS Safety Report 15890806 (Version 2)
Quarter: 2023Q1

REPORT INFORMATION
  Report Type: Spontaneous
  Country: US (occurrence: US)
  Receive Date: 20190130
  Receipt Date: 20230324
  Transmission Date: 20230418
  Serious: Yes (Disabling)
  Sender: FDA-Public Use
  Company Number: US-TEVA-2019-US-1005196

PATIENT
  Sex: Female

DRUGS (2)
  1. DOCETAXEL [Suspect]
     Active Substance: DOCETAXEL
     Indication: Breast cancer female
     Dosage: 150 MG, 6 CYCLES EVERY 3 WEEKS
     Route: 065
     Dates: start: 20130508, end: 20130821
  2. DOCETAXEL [Suspect]
     Active Substance: DOCETAXEL
     Indication: Breast cancer female
     Dosage: 150 MG, 6 CYCLES EVERY 3 WEEKS
     Route: 065
     Dates: start: 20130508, end: 20130821

REACTIONS (1)
  - Alopecia [Not Recovered/Not Resolved]
